FAERS Safety Report 6212356-8 (Version None)
Quarter: 2009Q2

REPORT INFORMATION
  Report Type: 
  Country: None (occurrence: None)
  Receive Date: 20090529
  Receipt Date: 20090520
  Transmission Date: 20091009
  Serious: Yes (Life-Threatening, Hospitalization)
  Sender: FDA-Public Use
  Company Number: GXKR2009DE06122

PATIENT
  Age: 69 Year
  Sex: Female
  Weight: 60 kg

DRUGS (10)
  1. HALOPERIDOL [Suspect]
     Indication: RESTLESSNESS
     Dosage: 1 MG, BID, ORAL
     Route: 048
     Dates: start: 20070101, end: 20090313
  2. ZOLPIDEM [Suspect]
     Indication: SLEEP DISORDER
     Dosage: 10 MG, QD, ORAL
     Route: 048
     Dates: start: 20060101, end: 20090313
  3. THEOPHYLLINE (NGX) (THEOPHYLLINE) EXTENDED RELEASE CAPSULES [Suspect]
     Indication: CHRONIC OBSTRUCTIVE PULMONARY DISEASE
     Dosage: 250 MG, BID, ORAL
     Route: 048
     Dates: start: 20050101
  4. RAMIPRIL [Suspect]
     Dosage: ORAL
     Route: 048
  5. PANTOPRAZOLE SODIUM [Suspect]
     Indication: PROPHYLAXIS AGAINST GASTROINTESTINAL ULCER
     Dosage: 20 MG, QD, ORAL
     Route: 048
     Dates: start: 20080101
  6. ANALGIN (METAMIZOLE SODIUM) [Concomitant]
  7. CALCIUM (CALCIUM) [Concomitant]
  8. IBUPROFEN [Concomitant]
  9. CLOPIDOGREL [Concomitant]
  10. NEBIVOLOL HCL [Concomitant]

REACTIONS (2)
  - HYPONATRAEMIA [None]
  - RHABDOMYOLYSIS [None]
